FAERS Safety Report 9448400 (Version 1)
Quarter: 2013Q3

REPORT INFORMATION
  Report Type: Spontaneous
  Country: CA (occurrence: CA)
  Receive Date: 20130808
  Receipt Date: 20130808
  Transmission Date: 20140515
  Serious: Yes (Hospitalization, Other)
  Sender: FDA-Public Use
  Company Number: CA-PFIZER INC-2013230447

PATIENT
  Age: 60 Year
  Sex: Female

DRUGS (3)
  1. CELEBREX [Suspect]
     Dosage: 200 MG, 1X/DAY
     Route: 048
     Dates: start: 20000217, end: 2001
  2. CELEBREX [Suspect]
     Dosage: 200 MG, 1X/DAY
     Route: 048
     Dates: start: 20010916
  3. APO-DOXEPIN [Concomitant]
     Dosage: 50 MG, 1X/DAY
     Dates: start: 20010906

REACTIONS (3)
  - Acute myocardial infarction [Unknown]
  - Angina pectoris [Unknown]
  - Pulmonary oedema [Unknown]
